FAERS Safety Report 21164204 (Version 1)
Quarter: 2022Q3

REPORT INFORMATION
  Report Type: Report from Study
  Country: IT (occurrence: IT)
  Receive Date: 20220803
  Receipt Date: 20220803
  Transmission Date: 20221027
  Serious: Yes (Hospitalization, Other)
  Sender: FDA-Public Use
  Company Number: IT-CELLTRION INC.-2022IT011934

PATIENT

DRUGS (8)
  1. RITUXIMAB [Suspect]
     Active Substance: RITUXIMAB
     Indication: Non-Hodgkin^s lymphoma
     Dosage: 500 MG/M2, Q1MONTH
     Route: 042
     Dates: start: 20220125, end: 20220516
  2. IDELALISIB [Suspect]
     Active Substance: IDELALISIB
     Indication: Non-Hodgkin^s lymphoma
     Dosage: 150 MG, BID
     Route: 048
     Dates: start: 20220125, end: 20220530
  3. AZITHROMYCIN [Concomitant]
     Active Substance: AZITHROMYCIN
     Dosage: UNK
     Dates: start: 20220627
  4. SULFAMETHOXAZOLE\TRIMETHOPRIM [Concomitant]
     Active Substance: SULFAMETHOXAZOLE\TRIMETHOPRIM
     Dosage: UNK
     Dates: start: 20200114
  5. ALLOPURINOL [Concomitant]
     Active Substance: ALLOPURINOL
     Dosage: UNK
     Dates: start: 20201014
  6. LEVOFLOXACIN [Concomitant]
     Active Substance: LEVOFLOXACIN
     Dosage: UNK
     Dates: start: 20220615, end: 20220627
  7. MONOCLONAL ANTIBODIES, GRANULOCYTE [Concomitant]
     Dosage: UNK
     Dates: start: 20220603
  8. OXYGEN [Concomitant]
     Active Substance: OXYGEN
     Dosage: UNK
     Dates: start: 20220629

REACTIONS (2)
  - Pneumonitis [Recovering/Resolving]
  - Overdose [Unknown]

NARRATIVE: CASE EVENT DATE: 20220629
